FAERS Safety Report 5859323-1 (Version None)
Quarter: 2008Q3

REPORT INFORMATION
  Report Type: 
  Country: None (occurrence: None)
  Receive Date: 20080826
  Receipt Date: 20080826
  Transmission Date: 20090109
  Serious: Yes (Hospitalization)
  Sender: FDA-Public Use
  Company Number: None

PATIENT
  Sex: Male
  Weight: 58.6 kg

DRUGS (6)
  1. CYTARABINE [Suspect]
     Dosage: 70 MG
  2. DAUNORUBICIN HCL [Suspect]
     Dosage: 117 MG
  3. DEXAMETHASONE [Suspect]
     Dosage: 224 MG
  4. METHOTREXATE [Suspect]
     Dosage: 30 MG
  5. PEG-L- [Suspect]
     Dosage: 3900 IU
  6. VINCRISTINE SULFATE [Suspect]
     Dosage: 6 MG

REACTIONS (9)
  - BACK PAIN [None]
  - DEHYDRATION [None]
  - FATIGUE [None]
  - GENERAL PHYSICAL HEALTH DETERIORATION [None]
  - NO THERAPEUTIC RESPONSE [None]
  - PALLOR [None]
  - PANCYTOPENIA [None]
  - RESPIRATORY DISTRESS [None]
  - SEPSIS [None]
